FAERS Safety Report 4899136-0 (Version None)
Quarter: 2006Q1

REPORT INFORMATION
  Report Type: 
  Country: None (occurrence: None)
  Receive Date: 20060202
  Receipt Date: 20051128
  Transmission Date: 20060701
  Serious: Yes (Death, Life-Threatening, Hospitalization)
  Sender: FDA-Public Use
  Company Number: GBWYE182028NOV05

PATIENT
  Sex: Male

DRUGS (10)
  1. ENBREL [Suspect]
     Indication: RHEUMATOID ARTHRITIS
     Route: 065
     Dates: start: 20050929, end: 20051109
  2. LANSOPRAZOLE [Concomitant]
  3. PERINDOPRIL [Concomitant]
  4. BENDROFLUMETHIAZIDE [Concomitant]
  5. FLUOXETINE [Concomitant]
  6. PROCHLORPERAZINE [Concomitant]
  7. TEMAZEPAM [Concomitant]
  8. CO-PROXAMOL [Concomitant]
     Route: 048
  9. NAPROXEN [Concomitant]
  10. ISONIAZID [Concomitant]

REACTIONS (2)
  - DEATH [None]
  - INTERSTITIAL LUNG DISEASE [None]
